FAERS Safety Report 4954704-2 (Version None)
Quarter: 2006Q1

REPORT INFORMATION
  Report Type: 
  Country: None (occurrence: None)
  Receive Date: 20060327
  Receipt Date: 20050218
  Transmission Date: 20060701
  Serious: Yes (Hospitalization, Other)
  Sender: FDA-Public Use
  Company Number: US-GILEAD-2005-0008062

PATIENT
  Sex: Male
  Weight: 53.118 kg

DRUGS (15)
  1. VIREAD [Suspect]
     Indication: HIV INFECTION
     Dates: start: 20020118, end: 20050116
  2. ABACAVIR [Suspect]
     Indication: HIV INFECTION
     Dates: start: 20020118, end: 20050116
  3. KALETRA [Suspect]
     Indication: HIV INFECTION
     Dates: start: 20020118, end: 20050116
  4. VIDEX [Suspect]
     Indication: HIV INFECTION
     Dates: start: 20020118, end: 20050116
  5. CARISOPRODOL [Concomitant]
     Indication: MUSCLE RELAXANT THERAPY
     Route: 048
  6. FENTANYL [Concomitant]
     Indication: PAIN
     Route: 062
  7. FLUCONAZOLE [Concomitant]
     Indication: FUNGAL INFECTION
     Route: 048
  8. GLYBURIDE [Concomitant]
     Route: 048
  9. PROMETHAZINE [Concomitant]
  10. RABEPRAZOLE SODIUM [Concomitant]
     Indication: GASTROOESOPHAGEAL REFLUX DISEASE
     Route: 048
  11. RABEPRAZOLE SODIUM [Concomitant]
     Indication: ULCER
  12. BACRTIM DS [Concomitant]
     Indication: INFECTION
     Route: 048
  13. LORATADINE [Concomitant]
     Indication: HYPERSENSITIVITY
     Route: 048
  14. LORTAB [Concomitant]
     Indication: PAIN
  15. LORAZEPAM [Concomitant]
     Indication: CONVERSION DISORDER

REACTIONS (16)
  - ASCITES [None]
  - CHEST PAIN [None]
  - DEPRESSED LEVEL OF CONSCIOUSNESS [None]
  - FANCONI SYNDROME ACQUIRED [None]
  - HEART RATE INCREASED [None]
  - HEPATIC FAILURE [None]
  - HEPATIC STEATOSIS [None]
  - LACTIC ACIDOSIS [None]
  - LUNG HYPERINFLATION [None]
  - METABOLIC ACIDOSIS [None]
  - PANCREATITIS [None]
  - PORTAL HYPERTENSION [None]
  - PROSTATIC ABSCESS [None]
  - PROSTATITIS [None]
  - RENAL CYST [None]
  - SPINAL OSTEOARTHRITIS [None]
